FAERS Safety Report 8336034-4 (Version None)
Quarter: 2012Q2

REPORT INFORMATION
  Report Type: 
  Country: None (occurrence: None)
  Receive Date: 20120501
  Receipt Date: 20120501
  Transmission Date: 20120825
  Serious: Yes (Life-Threatening, Hospitalization)
  Sender: FDA-Public Use
  Company Number: None

PATIENT
  Age: 83 Year
  Sex: Male
  Weight: 136.4 kg

DRUGS (1)
  1. PREDNISONE TAB [Suspect]
     Indication: GOUT
     Dosage: MG EVERY DAY PO
     Route: 048
     Dates: start: 20120417, end: 20120423

REACTIONS (5)
  - ANAEMIA [None]
  - BLOOD CREATININE INCREASED [None]
  - HAEMORRHAGE [None]
  - GASTRIC HAEMORRHAGE [None]
  - BLOOD UREA INCREASED [None]
